FAERS Safety Report 4415394-0 (Version None)
Quarter: 2004Q3

REPORT INFORMATION
  Report Type: 
  Country: None (occurrence: None)
  Receive Date: 20040804
  Receipt Date: 20040727
  Transmission Date: 20050211
  Serious: Yes (Hospitalization)
  Sender: FDA-Public Use
  Company Number: PHNU2004DE02647

PATIENT
  Age: 38 Year
  Sex: Male
  Weight: 65 kg

DRUGS (1)
  1. SANDIMMUNE [Suspect]
     Indication: RENAL TRANSPLANT
     Dosage: 150 MG DAILY
     Route: 048
     Dates: start: 19950929, end: 20040503

REACTIONS (4)
  - DYSURIA [None]
  - KIDNEY TRANSPLANT REJECTION [None]
  - NASOPHARYNGITIS [None]
  - PROSTATITIS [None]
